FAERS Safety Report 11312276 (Version 6)
Quarter: 2019Q3

REPORT INFORMATION
  Report Type: Spontaneous
  Country: US (occurrence: US)
  Receive Date: 20150727
  Receipt Date: 20190829
  Transmission Date: 20191004
  Serious: Yes (Other)
  Sender: FDA-Public Use
  Company Number: US-PFIZER INC-2015243210

PATIENT
  Age: 53 Year
  Sex: Female
  Weight: 49.34 kg

DRUGS (12)
  1. LYRICA [Suspect]
     Active Substance: PREGABALIN
     Indication: TRIGEMINAL NEURALGIA
     Dosage: 75 MG, 1 CAPSULE 3/DAY (TID (THREE TIMES A DAY)) AND TWO AT BEDTIME
     Route: 048
     Dates: start: 20150429
  2. VALIUM [Concomitant]
     Active Substance: DIAZEPAM
     Dosage: 5 MG, AS NEEDED (TAKE 1 TABLET UP TO 2 TIMES A DAY BY ORAL ROUTE AS NEEDED)
     Route: 048
     Dates: start: 20150424
  3. ACETAMINOPHEN W/HYDROCODONE [Concomitant]
     Active Substance: ACETAMINOPHEN\HYDROCODONE
     Dosage: UNK, AS NEEDED  (HYDROCODONE 10 MG-ACETAMINOPHEN 325)
     Route: 048
     Dates: start: 20141028
  4. TRILEPTAL [Concomitant]
     Active Substance: OXCARBAZEPINE
     Dosage: 300 MG, (TAKE ONE-HALF AT BEDTIME FOR ONE WEEK AND THEN INCREASE TO ONE QHS)
     Dates: start: 20150429
  5. LYRICA [Suspect]
     Active Substance: PREGABALIN
     Indication: PARAESTHESIA
  6. DIAZEPAM. [Concomitant]
     Active Substance: DIAZEPAM
     Dosage: 5 MG, AS NEEDED  ( TWICE A DAY IF NEEDED)
     Route: 048
     Dates: start: 20160509
  7. LYRICA [Suspect]
     Active Substance: PREGABALIN
     Indication: MULTIPLE SCLEROSIS
     Dosage: 75 MG, 1 CAPSULE 3/DAY (TID (THREE TIMES A DAY)) AND TWO AT BEDTIME
     Route: 048
     Dates: start: 20161011
  8. KETOROLAC [Concomitant]
     Active Substance: KETOROLAC TROMETHAMINE
     Dosage: 10 MG, AS NEEDED (TAKE 1 TABLET UP TO TID PRN PAIN. DO NOT TAKE FOR MORE THAN 5 DAYS IN A ROW)
     Dates: start: 20160509
  9. TORADOL [Concomitant]
     Active Substance: KETOROLAC TROMETHAMINE
     Indication: PAIN
     Dosage: 10 MG, 3X/DAY (TAKE 1 TABLET UP TO TID PRN PAIN FOR UP TO FIVE DAYS IN A ROW)
     Dates: start: 20140828
  10. TRILEPTAL [Concomitant]
     Active Substance: OXCARBAZEPINE
     Dosage: 300 MG, (TAKE ONE-HALF AT BEDTIME FOR ONE WEEK AND THEN INCREASE TO ONE QHS)
     Dates: start: 20160509
  11. ADVIL [Concomitant]
     Active Substance: IBUPROFEN
     Dosage: 200 MG, AS NEEDED
     Route: 048
     Dates: start: 20151102
  12. KETOROLAC [Concomitant]
     Active Substance: KETOROLAC TROMETHAMINE
     Indication: PAIN
     Dosage: 10 MG, 3X/DAY (TAKE 1 TABLET UP TO TID PRN PAIN. DO NOT TAKE FOR MORE THAN 5 DAYS IN A ROW)
     Dates: start: 20141028

REACTIONS (28)
  - Blood pressure increased [Unknown]
  - Fatigue [Unknown]
  - Pyrexia [Unknown]
  - Headache [Unknown]
  - Cough [Unknown]
  - Dyspnoea [Unknown]
  - Back pain [Unknown]
  - Spinal pain [Unknown]
  - Sleep disorder [Unknown]
  - Trigeminal neuralgia [Unknown]
  - Condition aggravated [Unknown]
  - Vision blurred [Unknown]
  - Cytomegalovirus infection [Unknown]
  - Product use issue [Unknown]
  - Chest pain [Unknown]
  - Arthralgia [Unknown]
  - Balance disorder [Unknown]
  - Nausea [Unknown]
  - Hyperhidrosis [Unknown]
  - Myalgia [Unknown]
  - Muscular weakness [Unknown]
  - Gastroenteritis viral [Unknown]
  - Decreased appetite [Unknown]
  - Off label use [Unknown]
  - Diarrhoea [Recovering/Resolving]
  - Feeling cold [Unknown]
  - Loss of consciousness [Unknown]
  - Dizziness [Unknown]

NARRATIVE: CASE EVENT DATE: 20150429
